FAERS Safety Report 20603160 (Version 1)
Quarter: 2022Q1

REPORT INFORMATION
  Report Type: Spontaneous
  Country: ES (occurrence: ES)
  Receive Date: 20220316
  Receipt Date: 20220316
  Transmission Date: 20220423
  Serious: Yes (Hospitalization, Disabling, Other)
  Sender: FDA-Public Use
  Company Number: None

PATIENT
  Age: 88 Year
  Sex: Female

DRUGS (15)
  1. SERTRALINE [Suspect]
     Active Substance: SERTRALINE HYDROCHLORIDE
     Indication: Product used for unknown indication
     Route: 048
  2. EBASTINE [Suspect]
     Active Substance: EBASTINE
     Indication: Product used for unknown indication
  3. CETIRIZINE [Suspect]
     Active Substance: CETIRIZINE HYDROCHLORIDE
     Indication: Product used for unknown indication
  4. IBRUTINIB [Concomitant]
     Active Substance: IBRUTINIB
     Dosage: 3 TABLETS A DAY
  5. ACYCLOVIR [Concomitant]
     Active Substance: ACYCLOVIR
  6. LYRICA [Concomitant]
     Active Substance: PREGABALIN
  7. ENALAPRIL [Concomitant]
     Active Substance: ENALAPRIL
  8. ACETYLCYSTEINE [Concomitant]
     Active Substance: ACETYLCYSTEINE
  9. ERYTHROPOIETIN [Concomitant]
     Active Substance: ERYTHROPOIETIN
     Dosage: 30,000 IU/0.75 ML
  10. TERBUTALINE SULFATE [Concomitant]
     Active Substance: TERBUTALINE SULFATE
     Dosage: 500 MCG/INHALATION POWDER FOR?INHALATION
  11. FOSTER [Concomitant]
     Active Substance: BECLOMETHASONE\FORMOTEROL
     Dosage: 100 MCG/ 6 MCG/ INHALATION POWDER FOR?INHALATION
  12. IRON [Concomitant]
     Active Substance: IRON
  13. ATORVASTATIN [Concomitant]
     Active Substance: ATORVASTATIN
     Dosage: 10 TABLET
  14. CALCIFEDIOL [Concomitant]
     Active Substance: CALCIFEDIOL
  15. LEVOTHYROXINE [Concomitant]
     Active Substance: LEVOTHYROXINE

REACTIONS (1)
  - Fall [Unknown]
